FAERS Safety Report 20208636 (Version 2)
Quarter: 2022Q2

REPORT INFORMATION
  Report Type: Spontaneous
  Country: US (occurrence: None)
  Receive Date: 20211220
  Receipt Date: 20220422
  Transmission Date: 20220720
  Serious: Yes (Other)
  Sender: FDA-Public Use
  Company Number: 2021A882452

PATIENT
  Age: 78 Year
  Sex: Male
  Weight: 90.7 kg

DRUGS (23)
  1. PRILOSEC [Suspect]
     Active Substance: OMEPRAZOLE MAGNESIUM
     Route: 048
     Dates: start: 1990, end: 2020
  2. PRILOSEC OTC [Suspect]
     Active Substance: OMEPRAZOLE MAGNESIUM
     Route: 048
     Dates: start: 1990, end: 2020
  3. ASPIRIN [Concomitant]
     Active Substance: ASPIRIN
     Indication: Diuretic therapy
     Dates: start: 1990
  4. FISH OIL [Concomitant]
     Active Substance: FISH OIL
     Indication: Blood cholesterol
     Dates: start: 1990
  5. FAMOTIDINE [Concomitant]
     Active Substance: FAMOTIDINE
     Dates: start: 2019
  6. PEPCID COMPLETE [Concomitant]
     Active Substance: CALCIUM CARBONATE\FAMOTIDINE\MAGNESIUM HYDROXIDE
     Dates: start: 2020
  7. AMOXICILLIN [Concomitant]
     Active Substance: AMOXICILLIN
  8. MOVIPREP [Concomitant]
     Active Substance: ASCORBIC ACID\POLYETHYLENE GLYCOL 3350\POTASSIUM CHLORIDE\SODIUM ASCORBATE\SODIUM CHLORIDE\SODIUM SU
  9. AZITHROMYCIN [Concomitant]
     Active Substance: AZITHROMYCIN
  10. HYOSCYAMINE [Concomitant]
     Active Substance: HYOSCYAMINE
  11. CALCITRIOL [Concomitant]
     Active Substance: CALCITRIOL
  12. GEMFIBROZIL [Concomitant]
     Active Substance: GEMFIBROZIL
  13. ALPHAGAN P [Concomitant]
     Active Substance: BRIMONIDINE TARTRATE
  14. ILEVRO [Concomitant]
     Active Substance: NEPAFENAC
  15. LATANOPROST [Concomitant]
     Active Substance: LATANOPROST
  16. TEKTURNA [Concomitant]
     Active Substance: ALISKIREN HEMIFUMARATE
  17. INDAPAMIDE [Concomitant]
     Active Substance: INDAPAMIDE
  18. LOVASTATIN [Concomitant]
     Active Substance: LOVASTATIN
  19. TRIAMCINOLONE [Concomitant]
     Active Substance: TRIAMCINOLONE
  20. AZOPT [Concomitant]
     Active Substance: BRINZOLAMIDE
  21. DORZOLAMIDE [Concomitant]
     Active Substance: DORZOLAMIDE
  22. ALBUTEROL [Concomitant]
     Active Substance: ALBUTEROL
  23. CELECOXIB [Concomitant]
     Active Substance: CELECOXIB

REACTIONS (3)
  - Chronic kidney disease [Not Recovered/Not Resolved]
  - Renal failure [Not Recovered/Not Resolved]
  - Hyperparathyroidism secondary [Unknown]

NARRATIVE: CASE EVENT DATE: 20180101
